FAERS Safety Report 9880013 (Version 4)
Quarter: 2015Q3

REPORT INFORMATION
  Report Type: Report from Study
  Country: US (occurrence: US)
  Receive Date: 20140207
  Receipt Date: 20150928
  Transmission Date: 20151125
  Serious: Yes (Hospitalization, Other)
  Sender: FDA-Public Use
  Company Number: US-ROCHE-1256376

PATIENT
  Age: 51 Year
  Sex: Male
  Weight: 96.7 kg

DRUGS (5)
  1. SOVALDI [Suspect]
     Active Substance: SOFOSBUVIR
     Indication: CHRONIC HEPATITIS C
     Route: 065
     Dates: start: 20150209, end: 20150727
  2. SYMBICORT [Concomitant]
     Active Substance: BUDESONIDE\FORMOTEROL FUMARATE DIHYDRATE
     Indication: CHRONIC OBSTRUCTIVE PULMONARY DISEASE
     Route: 065
  3. PEGASYS [Suspect]
     Active Substance: PEGINTERFERON ALFA-2A
     Indication: CHRONIC HEPATITIS C
     Dosage: PATIENT WAS IN WEEK 11 OF 24-48 WEEK THERAPY
     Route: 058
     Dates: start: 20130601, end: 20131216
  4. FLONASE (UNITED STATES) [Concomitant]
     Indication: RHINITIS ALLERGIC
     Route: 065
  5. COPEGUS [Suspect]
     Active Substance: RIBAVIRIN
     Indication: CHRONIC HEPATITIS C
     Dosage: FREQUENCY : 2QAM, 2QPM
     Route: 048
     Dates: start: 20130601, end: 20131216

REACTIONS (7)
  - Lacrimation increased [Not Recovered/Not Resolved]
  - Coronary artery disease [Recovered/Resolved]
  - Eye pain [Not Recovered/Not Resolved]
  - Pain [Not Recovered/Not Resolved]
  - Arterial occlusive disease [Unknown]
  - Visual acuity reduced [Not Recovered/Not Resolved]
  - Eye disorder [Not Recovered/Not Resolved]

NARRATIVE: CASE EVENT DATE: 20130601
